FAERS Safety Report 4398736-4 (Version None)
Quarter: 2004Q3

REPORT INFORMATION
  Report Type: 
  Country: None (occurrence: None)
  Receive Date: 20040712
  Receipt Date: 20040617
  Transmission Date: 20050211
  Serious: Yes (Other)
  Sender: FDA-Public Use
  Company Number: EWC040639709

PATIENT
  Age: 65 Year
  Sex: Female

DRUGS (3)
  1. OLANZAPINE [Suspect]
     Indication: OBSESSIVE-COMPULSIVE DISORDER
     Dosage: 5 MG
     Dates: start: 20010314, end: 20040405
  2. ZOLOFT [Concomitant]
  3. ALPRAZOLAM [Concomitant]

REACTIONS (2)
  - CEREBRAL INFARCTION [None]
  - DISORIENTATION [None]
